FAERS Safety Report 9607591 (Version 2)
Quarter: 2013Q4

REPORT INFORMATION
  Report Type: Spontaneous
  Country: AR (occurrence: AR)
  Receive Date: 20131009
  Receipt Date: 20131226
  Transmission Date: 20140711
  Serious: Yes (Death, Hospitalization)
  Sender: FDA-Public Use
  Company Number: AR-AMGEN-ARGSP2013070623

PATIENT
  Age: 54 Year
  Sex: Female

DRUGS (3)
  1. ENBREL [Suspect]
     Indication: RHEUMATOID ARTHRITIS
     Dosage: 50 MG, WEEKLY
     Route: 065
     Dates: start: 20041222, end: 201307
  2. DICLOFENAC [Concomitant]
     Dosage: UNK
  3. RANITIDINE [Concomitant]
     Dosage: 50 MG, UNK

REACTIONS (9)
  - Multi-organ failure [Fatal]
  - Nephrolithiasis [Not Recovered/Not Resolved]
  - Cholelithiasis [Not Recovered/Not Resolved]
  - Dyspnoea [Unknown]
  - Cardiac disorder [Unknown]
  - Abdominal pain [Not Recovered/Not Resolved]
  - Renal impairment [Unknown]
  - Inflammation [Unknown]
  - Pneumonia [Unknown]
